FAERS Safety Report 5804622-2 (Version None)
Quarter: 2008Q3

REPORT INFORMATION
  Report Type: 
  Country: None (occurrence: None)
  Receive Date: 20080702
  Receipt Date: 20080314
  Transmission Date: 20090109
  Serious: Yes (Death)
  Sender: FDA-Public Use
  Company Number: 553418

PATIENT
  Age: 33 Year
  Sex: Male

DRUGS (9)
  1. CLONAZEPAM [Suspect]
     Indication: ANXIETY
     Dosage: 1 MG 3 PER DAY ORAL
     Route: 048
     Dates: end: 20080101
  2. OPANA ER [Suspect]
     Indication: PAIN
     Dosage: 20 MG 2 PER DAY ORAL
     Route: 048
     Dates: start: 20071101, end: 20080101
  3. MICARDIS [Suspect]
     Indication: HYPERTENSION
     Dosage: 80 MG 1 PER DAY ORAL
     Route: 048
     Dates: end: 20080101
  4. BACLOFEN [Suspect]
     Indication: DRUG USE FOR UNKNOWN INDICATION
     Dosage: 40 MG 2 PER DAY ORAL
     Route: 048
     Dates: end: 20080101
  5. CYCLOBENZAPRINE [Suspect]
     Indication: DRUG USE FOR UNKNOWN INDICATION
     Dosage: 10 MG 3 PER DAY ORAL
     Route: 048
     Dates: end: 20080101
  6. ROZEREM [Suspect]
     Indication: INSOMNIA
     Dates: end: 20080101
  7. AMITRIPTYLINE HYDROCHLORIDE [Suspect]
     Indication: DEPRESSION
     Dosage: 100 MG DAILY ORAL
     Route: 047
     Dates: end: 20080101
  8. WELLBUTRIN XL [Suspect]
     Indication: DEPRESSION
     Dosage: 300 MG DAILY ORAL
     Route: 048
     Dates: end: 20080101
  9. OXYCODONE HCL [Suspect]
     Indication: PAIN
     Dosage: ORAL
     Route: 048
     Dates: end: 20080101

REACTIONS (1)
  - DRUG TOXICITY [None]
